FAERS Safety Report 20665456 (Version 1)
Quarter: 2022Q2

REPORT INFORMATION
  Report Type: Spontaneous
  Country: AU (occurrence: AU)
  Receive Date: 20220402
  Receipt Date: 20220402
  Transmission Date: 20220721
  Serious: Yes (Other)
  Sender: FDA-Public Use
  Company Number: AU-STRIDES ARCOLAB LIMITED-2022SP003338

PATIENT
  Age: 5 Year
  Sex: Male

DRUGS (1)
  1. MONTELUKAST [Suspect]
     Active Substance: MONTELUKAST SODIUM
     Indication: Asthma
     Dosage: UNK
     Route: 065

REACTIONS (8)
  - Withdrawal syndrome [Recovered/Resolved]
  - Neuropsychiatric symptoms [Recovered/Resolved]
  - Hallucination, auditory [Recovered/Resolved]
  - Nightmare [Unknown]
  - Panic attack [Recovered/Resolved]
  - Obsessive thoughts [Recovered/Resolved]
  - Agitation [Recovered/Resolved]
  - Anxiety [Recovered/Resolved]
